FAERS Safety Report 10186446 (Version 1)
Quarter: 2014Q2

REPORT INFORMATION
  Report Type: Spontaneous
  Country: US (occurrence: US)
  Receive Date: 20140521
  Receipt Date: 20140521
  Transmission Date: 20141212
  Serious: No
  Sender: FDA-Public Use
  Company Number: US-ASTRAZENECA-2013SE80014

PATIENT
  Age: 69 Year
  Sex: Female
  Weight: 73.5 kg

DRUGS (7)
  1. PULMICORT FLEXHALER [Suspect]
     Indication: ASTHMA
     Dosage: 180 MCG, 2 PUFFS BID
     Route: 055
     Dates: start: 20131016, end: 20131028
  2. LOSARTIN HYDROCHOLITHIAZIDE [Concomitant]
     Indication: HYPERTENSION
     Dosage: 100/25 DAILY
     Route: 048
  3. SYNTHROID [Concomitant]
     Indication: THYROID DISORDER
     Dosage: 75 MCG DAILY
     Route: 048
  4. ESTRADIOL [Concomitant]
     Indication: HORMONE THERAPY
     Route: 048
  5. SIMVASTATIN [Concomitant]
     Indication: BLOOD CHOLESTEROL ABNORMAL
     Route: 048
  6. SLUTICASONE [Concomitant]
     Indication: MULTIPLE ALLERGIES
     Dosage: 2 PUFFS DAILY DAILY
     Route: 045
  7. CLARITIN OTC [Concomitant]
     Indication: MULTIPLE ALLERGIES
     Dosage: DAILY
     Route: 048

REACTIONS (6)
  - Throat tightness [Unknown]
  - Nervousness [Unknown]
  - Adverse event [Unknown]
  - Circumstance or information capable of leading to medication error [Unknown]
  - Drug dose omission [Unknown]
  - Intentional product misuse [Unknown]
